FAERS Safety Report 5681222-9 (Version None)
Quarter: 2008Q1

REPORT INFORMATION
  Report Type: 
  Country: None (occurrence: None)
  Receive Date: 20080326
  Receipt Date: 20070105
  Transmission Date: 20080703
  Serious: No
  Sender: FDA-Public Use
  Company Number: US-BAYER-US-2007-000368

PATIENT
  Age: 32 Year
  Sex: Female

DRUGS (4)
  1. MIRENA [Suspect]
     Indication: CONTRACEPTION
     Route: 015
     Dates: start: 20061218
  2. SYNTHROID [Concomitant]
  3. LEXAPRO [Concomitant]
  4. FROVA [Concomitant]
     Indication: MIGRAINE

REACTIONS (1)
  - HEADACHE [None]
